FAERS Safety Report 5637138-7 (Version None)
Quarter: 2008Q1

REPORT INFORMATION
  Report Type: 
  Country: None (occurrence: None)
  Receive Date: 20080225
  Receipt Date: 20071102
  Transmission Date: 20080703
  Serious: No
  Sender: FDA-Public Use
  Company Number: US-BRISTOL-MYERS SQUIBB COMPANY-13989108

PATIENT
  Sex: Male

DRUGS (3)
  1. METFORMIN HCL [Suspect]
     Route: 048
     Dates: end: 20070401
  2. ACTOS [Suspect]
     Dates: start: 20060101, end: 20070401
  3. ACTOPLUS MET [Suspect]
     Dosage: 1 DOSAGE FORM=15MG/850MG
     Dates: start: 20070101, end: 20070701

REACTIONS (2)
  - MUSCULOSKELETAL PAIN [None]
  - OEDEMA PERIPHERAL [None]
